FAERS Safety Report 7335387-3 (Version None)
Quarter: 2011Q1

REPORT INFORMATION
  Report Type: 
  Country: None (occurrence: None)
  Receive Date: 20110228
  Receipt Date: 20101214
  Transmission Date: 20110831
  Serious: Yes (Other)
  Sender: FDA-Public Use
  Company Number: US-000282

PATIENT
  Sex: Female
  Weight: 57.1532 kg

DRUGS (6)
  1. CELEXA [Concomitant]
  2. PHENERGAN HCL [Concomitant]
  3. VITAMIN D [Concomitant]
  4. RANITIDINE [Concomitant]
  5. TRAZODONE HYDROCHLORIDE [Suspect]
     Indication: INSOMNIA
     Dosage: (150 MG QD ORAL)
     Route: 048
     Dates: start: 20101201, end: 20101211
  6. CLONOPIN [Concomitant]

REACTIONS (2)
  - MYALGIA [None]
  - DIPLOPIA [None]
